FAERS Safety Report 25768471 (Version 1)
Quarter: 2025Q3

REPORT INFORMATION
  Report Type: Spontaneous
  Country: US (occurrence: US)
  Receive Date: 20250905
  Receipt Date: 20250905
  Transmission Date: 20251021
  Serious: No
  Sender: PFIZER
  Company Number: US-PFIZER INC-PV202500107607

PATIENT
  Sex: Female

DRUGS (3)
  1. TIVDAK [Suspect]
     Active Substance: TISOTUMAB VEDOTIN-TFTV
     Indication: Cervix carcinoma
  2. KEYTRUDA [Concomitant]
     Active Substance: PEMBROLIZUMAB
  3. AVASTIN [Concomitant]
     Active Substance: BEVACIZUMAB

REACTIONS (2)
  - Dry eye [Recovered/Resolved]
  - Conjunctivitis [Recovered/Resolved]

NARRATIVE: CASE EVENT DATE: 20250101
